FAERS Safety Report 4771838-6 (Version None)
Quarter: 2005Q3

REPORT INFORMATION
  Report Type: 
  Country: None (occurrence: None)
  Receive Date: 20050916
  Receipt Date: 20050902
  Transmission Date: 20060218
  Serious: Yes (Hospitalization, Other)
  Sender: FDA-Public Use
  Company Number: DE-JNJFOC-20050304301

PATIENT
  Sex: Male
  Weight: 28.1 kg

DRUGS (2)
  1. CONCERTA [Suspect]
     Route: 048
  2. EQUASYM [Suspect]
     Route: 048

REACTIONS (4)
  - HYPERSENSITIVITY [None]
  - INFECTION [None]
  - PYREXIA [None]
  - RASH [None]
